FAERS Safety Report 9744780 (Version 1)
Quarter: 2013Q4

REPORT INFORMATION
  Report Type: Report from Study
  Country: US (occurrence: US)
  Receive Date: 20131210
  Receipt Date: 20131210
  Transmission Date: 20140711
  Serious: Yes (Death, Other)
  Sender: FDA-Public Use
  Company Number: US-ROCHE-1315041

PATIENT
  Age: 81 Year
  Sex: Female

DRUGS (3)
  1. HERCEPTIN [Suspect]
     Indication: BREAST CANCER METASTATIC
     Dosage: FIRST LINE THERAPY
     Route: 065
  2. XELODA [Suspect]
     Indication: BREAST CANCER METASTATIC
     Dosage: THIRD LINE THERAPY
     Route: 048
  3. AFINITOR [Concomitant]
     Dosage: SECOND LINE
     Route: 065

REACTIONS (3)
  - Death [Fatal]
  - Cardiotoxicity [Unknown]
  - Febrile neutropenia [Unknown]
